FAERS Safety Report 5510872-5 (Version None)
Quarter: 2007Q4

REPORT INFORMATION
  Report Type: 
  Country: None (occurrence: None)
  Receive Date: 20071107
  Receipt Date: 20071025
  Transmission Date: 20080405
  Serious: Yes (Death, Hospitalization)
  Sender: FDA-Public Use
  Company Number: 2007BI012337

PATIENT
  Age: 55 Year
  Sex: Female

DRUGS (6)
  1. NATALIZUMAB [Suspect]
     Indication: MULTIPLE SCLEROSIS
     Dosage: 300 MG; QM; IV
     Route: 042
     Dates: start: 20061219, end: 20070424
  2. NATALIZUMAB [Suspect]
     Indication: MULTIPLE SCLEROSIS
     Dosage: 300 MG; QM; IV
     Route: 042
     Dates: start: 20070821, end: 20070821
  3. AMBIEN [Concomitant]
  4. VALIUM [Concomitant]
  5. VITAMIN B [Concomitant]
  6. VITAMIN D [Concomitant]

REACTIONS (35)
  - ATRIAL FIBRILLATION [None]
  - ATRIOVENTRICULAR BLOCK FIRST DEGREE [None]
  - AUTONOMIC NERVOUS SYSTEM IMBALANCE [None]
  - BLINDNESS UNILATERAL [None]
  - BLISTER [None]
  - BLOOD GLUCOSE INCREASED [None]
  - BLOOD POTASSIUM DECREASED [None]
  - CEREBRAL INFARCTION [None]
  - CEREBROVASCULAR ACCIDENT [None]
  - CNS VENTRICULITIS [None]
  - CONDITION AGGRAVATED [None]
  - CSF TEST ABNORMAL [None]
  - DECREASED APPETITE [None]
  - DEHYDRATION [None]
  - DYSARTHRIA [None]
  - DYSPNOEA [None]
  - ENCEPHALITIS [None]
  - GAZE PALSY [None]
  - HAEMATOCHEZIA [None]
  - HAEMATOCRIT DECREASED [None]
  - HAEMOGLOBIN DECREASED [None]
  - HEADACHE [None]
  - HYPOTHERMIA [None]
  - LABORATORY TEST INTERFERENCE [None]
  - MENINGITIS VIRAL [None]
  - MENTAL STATUS CHANGES [None]
  - MULTIPLE SCLEROSIS [None]
  - PLATELET COUNT DECREASED [None]
  - PLEOCYTOSIS [None]
  - RED CELL DISTRIBUTION WIDTH INCREASED [None]
  - RESPIRATORY ARREST [None]
  - RESPIRATORY FAILURE [None]
  - URINARY TRACT INFECTION ENTEROCOCCAL [None]
  - URINARY TRACT INFECTION STAPHYLOCOCCAL [None]
  - VAGINAL DISCHARGE [None]
